APPROVED DRUG PRODUCT: BUPROPION HYDROCHLORIDE
Active Ingredient: BUPROPION HYDROCHLORIDE
Strength: 200MG
Dosage Form/Route: TABLET, EXTENDED RELEASE;ORAL
Application: A203969 | Product #003
Applicant: TORRENT PHARMACEUTICALS LTD
Approved: Oct 31, 2014 | RLD: No | RS: No | Type: DISCN